FAERS Safety Report 8475840-2 (Version None)
Quarter: 2012Q2

REPORT INFORMATION
  Report Type: 
  Country: None (occurrence: None)
  Receive Date: 20120628
  Receipt Date: 20120619
  Transmission Date: 20120825
  Serious: Yes (Other)
  Sender: FDA-Public Use
  Company Number: US-ASTRAZENECA-2010SE55722

PATIENT
  Age: 68 Year
  Sex: Female
  Weight: 90.7 kg

DRUGS (10)
  1. ENALAPRIL MALEATE [Concomitant]
  2. ESTRADIOL [Concomitant]
  3. PRAVASTATIN [Concomitant]
  4. NEXIUM [Suspect]
     Route: 048
  5. SEROQUEL [Suspect]
     Indication: POST-TRAUMATIC STRESS DISORDER
     Dosage: 100 MG AM AND PM AND 400 MG HS
     Route: 048
  6. SONATA [Concomitant]
  7. IMODIUM [Concomitant]
  8. DIOVAN [Concomitant]
  9. APRAZALEM [Concomitant]
  10. NUVIGIL [Concomitant]

REACTIONS (14)
  - DYSURIA [None]
  - STRESS [None]
  - FALL [None]
  - LOWER LIMB FRACTURE [None]
  - VOMITING [None]
  - DIARRHOEA [None]
  - WRONG DRUG ADMINISTERED [None]
  - DIVERTICULITIS [None]
  - WEIGHT INCREASED [None]
  - PYREXIA [None]
  - VIITH NERVE INJURY [None]
  - WEIGHT LOSS POOR [None]
  - WRIST FRACTURE [None]
  - PULMONARY FUNCTION TEST DECREASED [None]
